FAERS Safety Report 11124393 (Version 1)
Quarter: 2015Q2

REPORT INFORMATION
  Report Type: Report from Study
  Country: US (occurrence: US)
  Receive Date: 20150520
  Receipt Date: 20150520
  Transmission Date: 20150821
  Serious: Yes (Hospitalization)
  Sender: FDA-Public Use
  Company Number: US-BIOGENIDEC-2015BI065913

PATIENT
  Sex: Female

DRUGS (2)
  1. TYSABRI [Suspect]
     Active Substance: NATALIZUMAB
     Indication: MULTIPLE SCLEROSIS
     Route: 042
     Dates: start: 20141014
  2. TYSABRI [Suspect]
     Active Substance: NATALIZUMAB
     Indication: MULTIPLE SCLEROSIS
     Route: 042
     Dates: start: 20120425, end: 20130710

REACTIONS (8)
  - Muscle spasms [Recovered/Resolved]
  - Hypoaesthesia [Recovered/Resolved]
  - Pulmonary embolism [Recovered/Resolved]
  - Thrombosis [Recovered/Resolved]
  - White blood cell count increased [Unknown]
  - Oesophageal spasm [Recovered/Resolved]
  - Vomiting projectile [Recovered/Resolved]
  - Multiple sclerosis relapse [Not Recovered/Not Resolved]
